FAERS Safety Report 7364594-9 (Version None)
Quarter: 2011Q1

REPORT INFORMATION
  Report Type: 
  Country: None (occurrence: None)
  Receive Date: 20110321
  Receipt Date: 20110314
  Transmission Date: 20110831
  Serious: Yes (Death, Other)
  Sender: FDA-Public Use
  Company Number: GXKR2010JP10496

PATIENT
  Age: 72 Year
  Sex: Male

DRUGS (4)
  1. PREDNISOLONE [Suspect]
     Indication: DERMATOMYOSITIS
     Dosage: UNK
     Dates: start: 20081227
  2. PACLITAXEL [Suspect]
     Indication: NON-SMALL CELL LUNG CANCER STAGE IIIB
     Dosage: 180 MG/M2, UNK
     Route: 065
     Dates: start: 20100825
  3. CARBOPLATIN [Suspect]
     Indication: NON-SMALL CELL LUNG CANCER STAGE IIIB
     Dosage: UNK
     Route: 065
     Dates: start: 20080825
  4. TRIMETHOPRIM [Suspect]
     Indication: PROPHYLAXIS

REACTIONS (9)
  - BRONCHIAL WALL THICKENING [None]
  - HYPOXIA [None]
  - NON-SMALL CELL LUNG CANCER [None]
  - INTERSTITIAL LUNG DISEASE [None]
  - DYSPNOEA [None]
  - NEUTROPHIL COUNT DECREASED [None]
  - BLOOD LACTATE DEHYDROGENASE DECREASED [None]
  - COUGH [None]
  - BLOOD CREATINE PHOSPHOKINASE DECREASED [None]
